FAERS Safety Report 17592906 (Version 4)
Quarter: 2020Q2

REPORT INFORMATION
  Report Type: Report from Study
  Country: US (occurrence: US)
  Receive Date: 20200327
  Receipt Date: 20200522
  Transmission Date: 20200713
  Serious: Yes (Death, Hospitalization, Other)
  Sender: FDA-Public Use
  Company Number: US-GILEAD-2020-0456348

PATIENT
  Age: 3 Year
  Sex: Female

DRUGS (29)
  1. IPRATROPIUM [Concomitant]
     Active Substance: IPRATROPIUM
  2. WHITE PETROLATUM [Concomitant]
     Active Substance: PETROLATUM
  3. CALCIUM CHLORIDE. [Concomitant]
     Active Substance: CALCIUM CHLORIDE
  4. EPINEPHRINE. [Concomitant]
     Active Substance: EPINEPHRINE
  5. MYCOSTATIN [Concomitant]
     Active Substance: NYSTATIN
  6. SUBLIMAZE [FENTANYL] [Concomitant]
  7. SIMETHICONE (DIMETHICONE) [Concomitant]
     Active Substance: DIMETHICONE
  8. SODIUM BICARBONATE. [Concomitant]
     Active Substance: SODIUM BICARBONATE
  9. POLYMYXIN/TRIMETHOPRIM [Concomitant]
     Active Substance: POLYMYXIN B SULFATE\TRIMETHOPRIM
  10. QUETIAPINE. [Concomitant]
     Active Substance: QUETIAPINE
  11. HEPARIN [Concomitant]
     Active Substance: HEPARIN SODIUM
  12. ALBUTEROL [SALBUTAMOL] [Concomitant]
     Active Substance: ALBUTEROL
  13. ARTIFICIAL TEARS [GLYCEROL;HYPROMELLOSE;MACROGOL] [Concomitant]
  14. TYLENOL [Concomitant]
     Active Substance: ACETAMINOPHEN
  15. ADCIRCA [Concomitant]
     Active Substance: TADALAFIL
  16. FUROSEMIDE. [Concomitant]
     Active Substance: FUROSEMIDE
  17. LIDOCAINE. [Concomitant]
     Active Substance: LIDOCAINE
  18. VANCOMYCIN [Concomitant]
     Active Substance: VANCOMYCIN
  19. MELATONIN [Concomitant]
     Active Substance: MELATONIN
  20. AMBRISENTAN [Suspect]
     Active Substance: AMBRISENTAN
     Indication: PULMONARY ARTERIAL HYPERTENSION
     Dosage: 5 MG, QD
     Route: 065
     Dates: start: 20180110
  21. NORMAL SALINE [Concomitant]
     Active Substance: SODIUM CHLORIDE
  22. MAXIPIME [Concomitant]
     Active Substance: CEFEPIME HYDROCHLORIDE
  23. PRIMACOR [Concomitant]
     Active Substance: MILRINONE LACTATE
  24. D5NM [Concomitant]
  25. KCL [Concomitant]
     Active Substance: POTASSIUM CHLORIDE
  26. AMBRISENTAN [Suspect]
     Active Substance: AMBRISENTAN
     Indication: VENTRICULAR SEPTAL DEFECT
  27. IBUPROFEN. [Concomitant]
     Active Substance: IBUPROFEN
  28. PITRESSIN [Concomitant]
     Active Substance: VASOPRESSIN
  29. NORCURON [Concomitant]
     Active Substance: VECURONIUM BROMIDE

REACTIONS (5)
  - Overdose [Fatal]
  - Off label use [Unknown]
  - Respiratory failure [Fatal]
  - Pulmonary hypertension [Fatal]
  - Cardiac failure [Fatal]
